FAERS Safety Report 5023870-5 (Version None)
Quarter: 2006Q2

REPORT INFORMATION
  Report Type: 
  Country: None (occurrence: None)
  Receive Date: 20060606
  Receipt Date: 20060523
  Transmission Date: 20061013
  Serious: Yes (Other)
  Sender: FDA-Public Use
  Company Number: CHPA2006US05096

PATIENT
  Sex: Female

DRUGS (2)
  1. EXCEDRIN (MIGRAINE) [Suspect]
     Dosage: TRANSPLACENTAL
     Route: 064
  2. HYDROXYPROGESTERONE CAPROATE [Suspect]
     Dosage: TRANSPLACENTAL
     Route: 064

REACTIONS (3)
  - CONGENITAL HEART VALVE DISORDER [None]
  - CYANOSIS NEONATAL [None]
  - DRUG EXPOSURE DURING PREGNANCY [None]
